FAERS Safety Report 4624421-7 (Version None)
Quarter: 2005Q1

REPORT INFORMATION
  Report Type: 
  Country: None (occurrence: None)
  Receive Date: 20050330
  Receipt Date: 20050330
  Transmission Date: 20050727
  Serious: Yes (Hospitalization)
  Sender: FDA-Public Use
  Company Number: None

PATIENT
  Age: 31 Year
  Sex: Male
  Weight: 61 kg

DRUGS (9)
  1. RITUXIMAB [Suspect]
     Indication: GRAFT VERSUS HOST DISEASE
     Dosage: 375 MG/M2, 1/WEEKX4, IV
     Route: 042
     Dates: start: 20041105, end: 20050128
  2. RAPAMYCIN [Concomitant]
  3. TACROLIMUS [Concomitant]
  4. PREDNISONE [Concomitant]
  5. DIFLUCAN [Concomitant]
  6. BACTRIM [Concomitant]
  7. ACYCLOVIR [Concomitant]
  8. ACTIGALL [Concomitant]
  9. NPH INSULIN [Concomitant]

REACTIONS (5)
  - ATELECTASIS [None]
  - CHEST PAIN [None]
  - HYDRONEPHROSIS [None]
  - NEPHROLITHIASIS [None]
  - PLEURITIC PAIN [None]
